FAERS Safety Report 8297817-2 (Version None)
Quarter: 2012Q2

REPORT INFORMATION
  Report Type: 
  Country: None (occurrence: None)
  Receive Date: 20120419
  Receipt Date: 20120411
  Transmission Date: 20120825
  Serious: Yes (Hospitalization)
  Sender: FDA-Public Use
  Company Number: US-BAYER-2012-028654

PATIENT
  Age: 17 Year
  Sex: Female
  Weight: 65.76 kg

DRUGS (2)
  1. YAZ [Suspect]
     Dosage: UNK
     Route: 048
     Dates: start: 20080507, end: 20080819
  2. MOTRIN [Concomitant]

REACTIONS (9)
  - PYREXIA [None]
  - GENERAL PHYSICAL HEALTH DETERIORATION [None]
  - EMOTIONAL DISTRESS [None]
  - FEELING COLD [None]
  - CHOLECYSTITIS CHRONIC [None]
  - GALLBLADDER DISORDER [None]
  - INJURY [None]
  - PAIN [None]
  - ANXIETY [None]
